FAERS Safety Report 21184905 (Version 1)
Quarter: 2022Q3

REPORT INFORMATION
  Report Type: Spontaneous
  Country: JP (occurrence: JP)
  Receive Date: 20220808
  Receipt Date: 20220808
  Transmission Date: 20221027
  Serious: Yes (Death, Hospitalization, Other)
  Sender: FDA-Public Use
  Company Number: JP-TAIHO-AB220694_P_1

PATIENT
  Age: 7 Decade
  Sex: Female

DRUGS (1)
  1. ABRAXANE [Suspect]
     Active Substance: PACLITAXEL
     Indication: HER2 positive breast cancer
     Dosage: DETAILS NOT REPORTED, 4 CYCLES
     Route: 065

REACTIONS (3)
  - Acute myeloid leukaemia [Fatal]
  - Cerebellar haemorrhage [Fatal]
  - Brain herniation [Fatal]
